FAERS Safety Report 7677517-X (Version None)
Quarter: 2011Q3

REPORT INFORMATION
  Report Type: 
  Country: None (occurrence: None)
  Receive Date: 20110808
  Receipt Date: 20110726
  Transmission Date: 20111222
  Serious: Yes (Hospitalization)
  Sender: FDA-Public Use
  Company Number: NO-005934

PATIENT
  Sex: Male
  Weight: 100 kg

DRUGS (15)
  1. ACETAMINOPHEN [Concomitant]
  2. TAMSULOSIN HYDROCHLORIDE [Concomitant]
  3. MORPHINE [Concomitant]
  4. PROSCAR [Concomitant]
  5. ALBYL [Concomitant]
  6. SERETIDE [Concomitant]
  7. SINGULAIR [Concomitant]
  8. NASONEX [Concomitant]
  9. MICARDIS [Concomitant]
  10. METOPROLOL SUCCINATE [Concomitant]
  11. SIMVASTATIN [Concomitant]
  12. CETIRIZINE HCL [Concomitant]
  13. DEGARELIX (DEGARELIX) (240 MG, 80 MG) [Suspect]
     Indication: PROSTATE CANCER
     Dosage: (240 MG 1X SUBCUTANEOUS) ; (80 MG 1X/MONTH SUBCUTANEOUS)
     Route: 058
     Dates: start: 20110604, end: 20110604
  14. DEGARELIX (DEGARELIX) (240 MG, 80 MG) [Suspect]
     Indication: PROSTATE CANCER
     Dosage: (240 MG 1X SUBCUTANEOUS) ; (80 MG 1X/MONTH SUBCUTANEOUS)
     Route: 058
     Dates: start: 20110708
  15. SPIRIVA [Concomitant]

REACTIONS (4)
  - STAPHYLOCOCCAL INFECTION [None]
  - ARRHYTHMIA [None]
  - PNEUMONIA [None]
  - ELECTROCARDIOGRAM ST SEGMENT DEPRESSION [None]
